FAERS Safety Report 8272303-4 (Version None)
Quarter: 2012Q2

REPORT INFORMATION
  Report Type: 
  Country: None (occurrence: None)
  Receive Date: 20120410
  Receipt Date: 20120326
  Transmission Date: 20120825
  Serious: Yes (Other)
  Sender: FDA-Public Use
  Company Number: PT-WATSON-2012-05592

PATIENT
  Age: 78 Year
  Sex: Male

DRUGS (3)
  1. MELPHALAN HYDROCHLORIDE [Suspect]
     Indication: MULTIPLE MYELOMA
     Dosage: UNK
     Route: 065
  2. THALIDOMIDE [Suspect]
     Indication: MULTIPLE MYELOMA
     Dosage: UNK
     Route: 065
  3. PREDNISOLONE [Suspect]
     Indication: MULTIPLE MYELOMA
     Dosage: UNK
     Route: 065

REACTIONS (2)
  - DRUG INEFFECTIVE [None]
  - NEUROPATHY PERIPHERAL [None]
